FAERS Safety Report 8621417-5 (Version None)
Quarter: 2012Q3

REPORT INFORMATION
  Report Type: 
  Country: None (occurrence: None)
  Receive Date: 20120824
  Receipt Date: 20120820
  Transmission Date: 20120928
  Serious: No
  Sender: FDA-Public Use
  Company Number: US-PFIZER INC-2012204524

PATIENT
  Sex: Female

DRUGS (1)
  1. TOVIAZ [Suspect]
     Indication: NOCTURIA
     Dosage: 8 MG, 1X/DAY
     Route: 048
     Dates: start: 20120813

REACTIONS (3)
  - STRESS URINARY INCONTINENCE [None]
  - DRUG INEFFECTIVE [None]
  - FEELING ABNORMAL [None]
